FAERS Safety Report 18167820 (Version 5)
Quarter: 2021Q4

REPORT INFORMATION
  Report Type: Report from Study
  Country: US (occurrence: US)
  Receive Date: 20200818
  Receipt Date: 20211109
  Transmission Date: 20220303
  Serious: Yes (Hospitalization)
  Sender: FDA-Public Use
  Company Number: US-NOVARTISPH-NVSC2020US226125

PATIENT
  Age: 4 Year
  Sex: Male

DRUGS (3)
  1. ILARIS [Suspect]
     Active Substance: CANAKINUMAB
     Indication: Juvenile idiopathic arthritis
     Dosage: 75 MG, EVERY 4 WEEKS
     Route: 058
     Dates: start: 20190213
  2. ILARIS [Suspect]
     Active Substance: CANAKINUMAB
     Dosage: 75 MG, QMO
     Route: 058
     Dates: start: 20191018
  3. ILARIS [Suspect]
     Active Substance: CANAKINUMAB
     Dosage: 75 MG, EVERY 6 WEEKS
     Route: 058
     Dates: start: 20191209

REACTIONS (6)
  - Cough [Unknown]
  - Pyrexia [Unknown]
  - Nasopharyngitis [Unknown]
  - Rhinorrhoea [Unknown]
  - COVID-19 [Unknown]
  - Product use issue [Unknown]

NARRATIVE: CASE EVENT DATE: 20191209
